FAERS Safety Report 7664455-1 (Version None)
Quarter: 2011Q3

REPORT INFORMATION
  Report Type: 
  Country: None (occurrence: None)
  Receive Date: 20110806
  Receipt Date: 20110104
  Transmission Date: 20111222
  Serious: No
  Sender: FDA-Public Use
  Company Number: US-ABBOTT-11P-163-0695061-00

PATIENT
  Sex: Male
  Weight: 88.53 kg

DRUGS (3)
  1. OTC MEDS [Concomitant]
     Indication: PAIN
  2. METFORMIN HCL [Concomitant]
     Indication: PRODUCT USED FOR UNKNOWN INDICATION
  3. NIASPAN [Suspect]
     Indication: BLOOD CHOLESTEROL INCREASED
     Dosage: QHS
     Dates: start: 20101201

REACTIONS (1)
  - BLOOD GLUCOSE INCREASED [None]
